FAERS Safety Report 13526222 (Version 1)
Quarter: 2017Q2

REPORT INFORMATION
  Report Type: Spontaneous
  Country: FR (occurrence: FR)
  Receive Date: 20170509
  Receipt Date: 20170509
  Transmission Date: 20170830
  Serious: Yes (Other)
  Sender: FDA-Public Use
  Company Number: FR-009507513-1703FRA010363

PATIENT
  Age: 53 Year
  Sex: Female
  Weight: 62 kg

DRUGS (2)
  1. DIPROSTENE [Suspect]
     Active Substance: BETAMETHASONE DIPROPIONATE\BETAMETHASONE SODIUM PHOSPHATE
     Indication: BURSITIS
     Dosage: 2 INJECTIONS PER DAY
     Route: 051
     Dates: start: 20170303
  2. IOPAMIRON [Concomitant]
     Active Substance: IOPAMIDOL
     Dosage: UNK
     Route: 051
     Dates: start: 20170303

REACTIONS (16)
  - Malaise [Unknown]
  - Polyuria [Unknown]
  - Fatigue [Unknown]
  - Palpitations [Unknown]
  - Hypertension [Unknown]
  - Leukocytosis [Unknown]
  - Infusion site paraesthesia [Unknown]
  - Infusion site pain [Unknown]
  - Migraine [Not Recovered/Not Resolved]
  - Hot flush [Not Recovered/Not Resolved]
  - Nausea [Unknown]
  - Chest pain [Unknown]
  - Paraesthesia [Unknown]
  - Urticaria [Unknown]
  - Somnolence [Unknown]
  - Orthostatic hypertension [Not Recovered/Not Resolved]

NARRATIVE: CASE EVENT DATE: 201703
